FAERS Safety Report 9991674 (Version 1)
Quarter: 2014Q1

REPORT INFORMATION
  Report Type: Spontaneous
  Country: DE (occurrence: DE)
  Receive Date: 20140310
  Receipt Date: 20140310
  Transmission Date: 20141002
  Serious: Yes (Life-Threatening)
  Sender: FDA-Public Use
  Company Number: DE-JNJFOC-20140218108

PATIENT
  Sex: Female

DRUGS (2)
  1. DOXORUBICIN HYDROCHLORIDE [Suspect]
     Indication: OVARIAN CANCER RECURRENT
     Route: 033
  2. CISPLATIN [Suspect]
     Indication: OVARIAN CANCER RECURRENT
     Route: 033

REACTIONS (2)
  - Procedural intestinal perforation [Unknown]
  - Wrong technique in drug usage process [Unknown]
